FAERS Safety Report 14097028 (Version 3)
Quarter: 2017Q4

REPORT INFORMATION
  Report Type: Report from Study
  Country: CA (occurrence: CA)
  Receive Date: 20171016
  Receipt Date: 20171129
  Transmission Date: 20180321
  Serious: Yes (Other)
  Sender: FDA-Public Use
  Company Number: CA-HLSUS-2017-CA-001080

PATIENT
  Age: 30 Year
  Sex: Male
  Weight: 84 kg

DRUGS (2)
  1. CLOZARIL [Suspect]
     Active Substance: CLOZAPINE
     Dosage: DAILY DOSE OF 50 MG AT BED TIME
     Route: 048
     Dates: start: 20171010, end: 20171015
  2. QUETIAPINE. [Concomitant]
     Active Substance: QUETIAPINE
     Dosage: 150 MG BED TIME
     Route: 048

REACTIONS (6)
  - Chest pain [Unknown]
  - Troponin increased [Unknown]
  - Body temperature increased [Unknown]
  - Tachycardia [Unknown]
  - C-reactive protein increased [Unknown]
  - Dyspnoea [Unknown]

NARRATIVE: CASE EVENT DATE: 20171011
